FAERS Safety Report 10498257 (Version 4)
Quarter: 2014Q4

REPORT INFORMATION
  Report Type: Spontaneous
  Country: US (occurrence: US)
  Receive Date: 20141006
  Receipt Date: 20141125
  Transmission Date: 20150528
  Serious: Yes (Hospitalization, Other)
  Sender: FDA-Public Use
  Company Number: US-GILEAD-2014-0117101

PATIENT
  Age: 52 Year
  Sex: Male

DRUGS (1)
  1. LETAIRIS [Suspect]
     Active Substance: AMBRISENTAN
     Indication: PRODUCT USED FOR UNKNOWN INDICATION
     Dosage: 5 MG, UNK
     Route: 065
     Dates: start: 20140716

REACTIONS (10)
  - Pain [Unknown]
  - Unevaluable event [Unknown]
  - Dyspnoea [Unknown]
  - Pneumonia [Unknown]
  - Paralysis [Unknown]
  - Echocardiogram abnormal [Unknown]
  - Neuralgic amyotrophy [Unknown]
  - Diaphragmatic paralysis [Recovering/Resolving]
  - Pulmonary function test decreased [Unknown]
  - Anxiety disorder [Unknown]
